FAERS Safety Report 22268208 (Version 6)
Quarter: 2023Q4

REPORT INFORMATION
  Report Type: Spontaneous
  Country: US (occurrence: US)
  Receive Date: 20230430
  Receipt Date: 20231115
  Transmission Date: 20240109
  Serious: No
  Sender: FDA-Public Use
  Company Number: US-PFIZER INC-PV202300075200

PATIENT
  Age: 81 Year
  Sex: Female
  Weight: 75.737 kg

DRUGS (1)
  1. BOSULIF [Suspect]
     Active Substance: BOSUTINIB MONOHYDRATE
     Indication: Chronic myeloid leukaemia
     Dosage: TAKE 3 TABLETS (300 MG TOTAL) BY MOUTH 1 TIME A DAY
     Route: 048

REACTIONS (1)
  - Diarrhoea [Recovered/Resolved]
